FAERS Safety Report 23454441 (Version 1)
Quarter: 2024Q1

REPORT INFORMATION
  Report Type: Spontaneous
  Country: EG (occurrence: EG)
  Receive Date: 20240130
  Receipt Date: 20240130
  Transmission Date: 20240410
  Serious: Yes (Other)
  Sender: FDA-Public Use
  Company Number: EG-HIKMA PHARMACEUTICALS-EG-H14001-24-00734

PATIENT
  Age: 54 Year
  Sex: Male
  Weight: 115 kg

DRUGS (2)
  1. GEMCITABINE [Suspect]
     Active Substance: GEMCITABINE
     Indication: Bladder cancer
     Dosage: 2000 MILLIGRAM, DAY 1,8, EVERY 21 DAYS
     Route: 041
  2. CISPLATIN [Suspect]
     Active Substance: CISPLATIN
     Indication: Bladder cancer
     Dosage: 2000 MILLIGRAM, DAY 1,8, EVERY 21 DAYS
     Route: 041

REACTIONS (7)
  - Anisocytosis [Unknown]
  - Red cell distribution width increased [Unknown]
  - Haematocrit increased [Unknown]
  - Normochromic normocytic anaemia [Unknown]
  - Neutropenia [Unknown]
  - Blood creatinine increased [Unknown]
  - Blood urea increased [Unknown]

NARRATIVE: CASE EVENT DATE: 20231221
